FAERS Safety Report 5055172-5 (Version None)
Quarter: 2006Q3

REPORT INFORMATION
  Report Type: 
  Country: None (occurrence: None)
  Receive Date: 20060719
  Receipt Date: 20060522
  Transmission Date: 20061208
  Serious: Yes (Other)
  Sender: FDA-Public Use
  Company Number: US-ROCHE-449087

PATIENT
  Age: 59 Year
  Sex: Female
  Weight: 93.4 kg

DRUGS (7)
  1. CELLCEPT [Suspect]
     Indication: LUPUS NEPHRITIS
     Route: 048
     Dates: start: 20050615
  2. COUMADIN [Concomitant]
     Route: 048
     Dates: start: 19970615
  3. GLIPIZIDE [Concomitant]
     Route: 048
  4. PREDNISONE TAB [Concomitant]
     Indication: DRUG USE FOR UNKNOWN INDICATION
     Route: 048
  5. CAPITROL [Concomitant]
     Dosage: DRUG NAME REPORTED AS CAPTIPROL
     Route: 048
  6. ARANESP [Concomitant]
     Indication: DRUG USE FOR UNKNOWN INDICATION
     Route: 058
  7. ZOLOFT [Concomitant]
     Route: 048

REACTIONS (15)
  - AMNESIA [None]
  - ARTERIOVENOUS MALFORMATION [None]
  - ARTHRALGIA [None]
  - BALANCE DISORDER [None]
  - DEEP VEIN THROMBOSIS [None]
  - DELUSION [None]
  - DEPRESSION [None]
  - DIVERTICULUM INTESTINAL [None]
  - FAT NECROSIS [None]
  - HAEMORRHOIDS [None]
  - LUPUS NEPHRITIS [None]
  - PANIC ATTACK [None]
  - PARANOIA [None]
  - RASH [None]
  - VISUAL ACUITY REDUCED [None]
